FAERS Safety Report 4772551-1 (Version None)
Quarter: 2005Q3

REPORT INFORMATION
  Report Type: 
  Country: None (occurrence: None)
  Receive Date: 20050916
  Receipt Date: 20050916
  Transmission Date: 20060218
  Serious: Yes (Life-Threatening, Hospitalization)
  Sender: FDA-Public Use
  Company Number: None

PATIENT
  Age: 22 Year
  Sex: Female
  Weight: 96 kg

DRUGS (5)
  1. CRYSELLE [Suspect]
     Dosage: 1 TABLET EVERY DAY PO
     Route: 048
     Dates: start: 20030801, end: 20050831
  2. DOLGIC PLUS [Suspect]
     Indication: MIGRAINE
     Dosage: 1 TABLET ONE TIME EVERY PO
     Route: 048
     Dates: start: 20050830, end: 20050830
  3. ZYRTEC-D 12 HOUR [Concomitant]
  4. PROVENTIL [Concomitant]
  5. RHINOCORT [Concomitant]

REACTIONS (14)
  - ASTHENIA [None]
  - BLOOD PRESSURE SYSTOLIC INCREASED [None]
  - CEREBROVASCULAR ACCIDENT [None]
  - CONFUSIONAL STATE [None]
  - CONVULSION [None]
  - DISORIENTATION [None]
  - HEART RATE INCREASED [None]
  - HEMIPARESIS [None]
  - HYPERCHROMIC ANAEMIA [None]
  - MIGRAINE [None]
  - PAIN [None]
  - RESPIRATORY ALKALOSIS [None]
  - RESPIRATORY RATE INCREASED [None]
  - UNEVALUABLE EVENT [None]
